FAERS Safety Report 8120328-1 (Version None)
Quarter: 2012Q1

REPORT INFORMATION
  Report Type: 
  Country: None (occurrence: None)
  Receive Date: 20120207
  Receipt Date: 20120125
  Transmission Date: 20120608
  Serious: Yes (Death)
  Sender: FDA-Public Use
  Company Number: US-GLAXOSMITHKLINE-A0948031A

PATIENT
  Age: 87 Year
  Sex: Male

DRUGS (2)
  1. PROMACTA [Suspect]
     Indication: THROMBOCYTOPENIA
     Route: 048
  2. CORTICOSTEROIDS [Concomitant]
     Indication: THROMBOCYTOPENIA

REACTIONS (1)
  - DEATH [None]
